FAERS Safety Report 9515357 (Version 1)
Quarter: 2013Q3

REPORT INFORMATION
  Report Type: Spontaneous
  Country: US (occurrence: US)
  Receive Date: 20130911
  Receipt Date: 20130911
  Transmission Date: 20140515
  Serious: No
  Sender: FDA-Public Use
  Company Number: US-BAYER-2013-107529

PATIENT
  Sex: Male

DRUGS (1)
  1. XOFIGO [Suspect]
     Dosage: 2 SHOTS

REACTIONS (3)
  - Nausea [None]
  - Parosmia [None]
  - Pollakiuria [None]
